FAERS Safety Report 14510917 (Version 1)
Quarter: 2018Q1

REPORT INFORMATION
  Report Type: Spontaneous
  Country: RO (occurrence: RO)
  Receive Date: 20180209
  Receipt Date: 20180209
  Transmission Date: 20180509
  Serious: Yes (Other)
  Sender: FDA-Public Use
  Company Number: RO-FRESENIUS KABI-FK201801481

PATIENT
  Age: 24 Week

DRUGS (2)
  1. ANTIBIOTICS DILUTED IN ISOTONIC SOLUTION [Suspect]
     Active Substance: UNSPECIFIED INGREDIENT
     Indication: PRODUCT USED FOR UNKNOWN INDICATION
  2. SODIUM CHLORIDE (MANUFACTURER UNKNOWN) [Suspect]
     Active Substance: SODIUM CHLORIDE
     Indication: PRODUCT USED FOR UNKNOWN INDICATION
     Route: 065

REACTIONS (5)
  - Hypernatraemia [Recovering/Resolving]
  - Cerebral haemorrhage [None]
  - Generalised tonic-clonic seizure [None]
  - Renal impairment [None]
  - Neonatal respiratory distress syndrome [None]
